FAERS Safety Report 16073428 (Version 1)
Quarter: 2019Q1

REPORT INFORMATION
  Report Type: Report from Study
  Country: MX (occurrence: MX)
  Receive Date: 20190314
  Receipt Date: 20190314
  Transmission Date: 20190418
  Serious: Yes (Other)
  Sender: FDA-Public Use
  Company Number: MX-SA-2019SA067450

PATIENT
  Sex: Female

DRUGS (1)
  1. INSULIN GLARGINE [Suspect]
     Active Substance: INSULIN GLARGINE
     Dosage: VARIABLE
     Route: 058
     Dates: start: 201704, end: 201902

REACTIONS (3)
  - Fatigue [Unknown]
  - Pulmonary oedema [Unknown]
  - Dyspnoea [Unknown]
